FAERS Safety Report 10041766 (Version 1)
Quarter: 2014Q1

REPORT INFORMATION
  Report Type: Spontaneous
  Country: GB (occurrence: GB)
  Receive Date: 20140327
  Receipt Date: 20140327
  Transmission Date: 20141002
  Serious: Yes (Hospitalization)
  Sender: FDA-Public Use
  Company Number: GB-WATSON-2014-05482

PATIENT
  Age: 90 Year
  Sex: Male

DRUGS (8)
  1. FUROSEMIDE (UNKNOWN) [Suspect]
     Indication: OEDEMA
     Dosage: 40 MG, DAILY
     Route: 048
  2. LISINOPRIL (UNKNOWN) [Suspect]
     Indication: HYPERTENSION
     Dosage: 20 MG, DAILY
     Route: 048
     Dates: end: 20140303
  3. GAVISCON /00237601/ [Suspect]
     Indication: DYSPEPSIA
     Dosage: 5-10ML AS NEEDED
     Route: 048
     Dates: end: 20140303
  4. ALLOPURINOL [Concomitant]
     Indication: GOUT
     Dosage: 300 MG, DAILY
     Route: 065
  5. DIGOXIN [Concomitant]
     Indication: ATRIAL FIBRILLATION
     Dosage: 125 ?G, DAILY
     Route: 065
  6. PARACETAMOL [Concomitant]
     Indication: PAIN
     Dosage: 1G FOUR TIMES A DAY AS NEEDED FOR PAIN
     Route: 065
  7. SALBUTAMOL [Concomitant]
     Indication: WHEEZING
     Dosage: 100 MICROGRAMS INHALED AS NEEDED
     Route: 055
  8. WARFARIN [Concomitant]
     Indication: ATRIAL FIBRILLATION
     Dosage: VARIABLE DOSING.
     Route: 065

REACTIONS (1)
  - Renal failure acute [Recovered/Resolved]
